FAERS Safety Report 15626392 (Version 1)
Quarter: 2018Q4

REPORT INFORMATION
  Report Type: Spontaneous
  Country: US (occurrence: US)
  Receive Date: 20181112
  Receipt Date: 20181112
  Transmission Date: 20190205
  Serious: No
  Sender: FDA-Public Use
  Company Number: None

PATIENT
  Age: 66 Year
  Sex: Male

DRUGS (2)
  1. LURASIDONE [Suspect]
     Active Substance: LURASIDONE
     Indication: DEPRESSION
     Dates: end: 20180614
  2. LURASIDONE [Suspect]
     Active Substance: LURASIDONE
     Indication: BIPOLAR I DISORDER
     Dates: end: 20180614

REACTIONS (1)
  - Akathisia [None]

NARRATIVE: CASE EVENT DATE: 20180614
